FAERS Safety Report 8013818-3 (Version None)
Quarter: 2011Q4

REPORT INFORMATION
  Report Type: 
  Country: None (occurrence: None)
  Receive Date: 20111229
  Receipt Date: 20111227
  Transmission Date: 20120403
  Serious: Yes (Other)
  Sender: FDA-Public Use
  Company Number: US-ROCHE-1025562

PATIENT
  Age: 74 Year
  Sex: Female

DRUGS (4)
  1. BONIVA [Suspect]
     Indication: OSTEOPOROSIS
     Route: 048
  2. IRON [Concomitant]
     Indication: OSTEOPOROSIS
     Route: 048
  3. MAGNESIUM [Concomitant]
  4. CALCIUM CITRATE [Concomitant]

REACTIONS (4)
  - PARAESTHESIA [None]
  - JOINT CREPITATION [None]
  - TOOTH EXTRACTION [None]
  - PAIN [None]
